FAERS Safety Report 21473340 (Version 2)
Quarter: 2022Q4

REPORT INFORMATION
  Report Type: Report from Study
  Country: CN (occurrence: None)
  Receive Date: 20221018
  Receipt Date: 20221020
  Transmission Date: 20230112
  Serious: Yes (Hospitalization)
  Sender: FDA-Public Use
  Company Number: 2022A345421

PATIENT
  Age: 23262 Day
  Sex: Male

DRUGS (7)
  1. DURVALUMAB [Suspect]
     Active Substance: DURVALUMAB
     Indication: Hepatocellular carcinoma
     Route: 042
     Dates: start: 20220922, end: 20220922
  2. DURVALUMAB [Suspect]
     Active Substance: DURVALUMAB
     Indication: Hepatocellular carcinoma
     Route: 042
     Dates: start: 20220825, end: 20220825
  3. TREMELIMUMAB [Suspect]
     Active Substance: TREMELIMUMAB
     Indication: Hepatocellular carcinoma
     Dosage: 300.0MG ONCE/SINGLE ADMINISTRATION
     Route: 042
     Dates: start: 20220825, end: 20220825
  4. OXYCODONE HYDROCHLORIDE PROLONGED-RELEASE TABLETS [Concomitant]
     Indication: Pain in extremity
     Route: 048
     Dates: start: 20220802
  5. ENTECAVIR TABLETS [Concomitant]
     Indication: Hepatitis B
     Route: 048
     Dates: start: 20220727
  6. TAMSULOSIN HYDROCHLORIDE SUSTAINED RELEASE CAPSULES [Concomitant]
     Indication: Benign prostatic hyperplasia
     Route: 048
     Dates: start: 20220805
  7. PROPECIA [Concomitant]
     Active Substance: FINASTERIDE
     Indication: Benign prostatic hyperplasia
     Route: 048
     Dates: start: 20220805

REACTIONS (1)
  - Drug-induced liver injury [Not Recovered/Not Resolved]

NARRATIVE: CASE EVENT DATE: 20221010
